FAERS Safety Report 23964825 (Version 2)
Quarter: 2024Q2

REPORT INFORMATION
  Report Type: Spontaneous
  Country: JP (occurrence: JP)
  Receive Date: 20240612
  Receipt Date: 20240617
  Transmission Date: 20240716
  Serious: Yes (Other)
  Sender: FDA-Public Use
  Company Number: JP-MSD-M2024-21413

PATIENT
  Age: 62 Year
  Sex: Female

DRUGS (6)
  1. LAGEVRIO [Suspect]
     Active Substance: MOLNUPIRAVIR
     Indication: COVID-19 treatment
     Dosage: 200 MILLIGRAM, ONCE
     Route: 048
     Dates: start: 20240523, end: 20240523
  2. LAGEVRIO [Suspect]
     Active Substance: MOLNUPIRAVIR
     Dosage: UNK
     Route: 048
     Dates: start: 202405, end: 20240525
  3. OLUMIANT [Suspect]
     Active Substance: BARICITINIB
     Indication: Rheumatoid arthritis
     Dosage: 2 MILLIGRAM, BID
     Route: 048
  4. CLOPERASTINE FENDIZOATE [Suspect]
     Active Substance: CLOPERASTINE FENDIZOATE
     Indication: Cough
     Dosage: 10 MILLIGRAM, TID
     Route: 048
     Dates: start: 20240523, end: 20240525
  5. TEPRENONE [Suspect]
     Active Substance: TEPRENONE
     Indication: Gastritis
     Dosage: 0.5 GRAM, TID
     Route: 048
     Dates: start: 20240523, end: 20240525
  6. CALONAL [Suspect]
     Active Substance: ACETAMINOPHEN
     Indication: Pyrexia
     Dosage: 400 MILLIGRAM, BID
     Route: 048
     Dates: start: 20240523, end: 20240525

REACTIONS (3)
  - Deafness unilateral [Recovered/Resolved]
  - Lip haemorrhage [Recovered/Resolved]
  - Underdose [Unknown]

NARRATIVE: CASE EVENT DATE: 20240523
